FAERS Safety Report 5925003-7 (Version None)
Quarter: 2008Q3

REPORT INFORMATION
  Report Type: 
  Country: None (occurrence: None)
  Receive Date: 20080909
  Receipt Date: 20080514
  Transmission Date: 20090109
  Serious: Yes (Hospitalization)
  Sender: FDA-Public Use
  Company Number: 163-20785-08040660

PATIENT
  Age: 65 Year
  Sex: Female

DRUGS (6)
  1. THALOMID [Suspect]
     Indication: MULTIPLE MYELOMA
     Dosage: 100 MG, DAILY, ORAL ; 200 MG, DAILY, ORAL ; 200 MG, DAILY, ORAL
     Route: 048
     Dates: start: 20080328, end: 20080404
  2. THALOMID [Suspect]
     Indication: MULTIPLE MYELOMA
     Dosage: 100 MG, DAILY, ORAL ; 200 MG, DAILY, ORAL ; 200 MG, DAILY, ORAL
     Route: 048
     Dates: start: 20080406, end: 20080407
  3. THALOMID [Suspect]
     Indication: MULTIPLE MYELOMA
     Dosage: 100 MG, DAILY, ORAL ; 200 MG, DAILY, ORAL ; 200 MG, DAILY, ORAL
     Route: 048
     Dates: start: 20080408, end: 20080411
  4. DEXAMETHASONE TAB [Concomitant]
  5. COUMADIN [Concomitant]
  6. LIPITOR [Concomitant]

REACTIONS (11)
  - CONSTIPATION [None]
  - FALL [None]
  - FATIGUE [None]
  - FEELING ABNORMAL [None]
  - HYPOAESTHESIA [None]
  - HYPOAESTHESIA ORAL [None]
  - LIP SWELLING [None]
  - PARAESTHESIA [None]
  - PARAESTHESIA ORAL [None]
  - SENSATION OF HEAVINESS [None]
  - VERTIGO [None]
